FAERS Safety Report 17170603 (Version 2)
Quarter: 2020Q1

REPORT INFORMATION
  Report Type: Spontaneous
  Country: US (occurrence: US)
  Receive Date: 20191218
  Receipt Date: 20200109
  Transmission Date: 20200409
  Serious: Yes (Hospitalization)
  Sender: FDA-Public Use
  Company Number: US-ACTELION-A-US2019-199360

PATIENT
  Age: 69 Year
  Sex: Female
  Weight: 180 kg

DRUGS (16)
  1. REXULTI [Concomitant]
     Active Substance: BREXPIPRAZOLE
     Dosage: 2 MG, QD
  2. METFORMIN [Concomitant]
     Active Substance: METFORMIN HYDROCHLORIDE
     Dosage: 500 MG, BID
     Dates: start: 201903
  3. HYDROXYZINE [Concomitant]
     Active Substance: HYDROXYZINE HYDROCHLORIDE
     Dosage: 50 MG
  4. OPSUMIT [Suspect]
     Active Substance: MACITENTAN
     Indication: PULMONARY ARTERIAL HYPERTENSION
     Dosage: 10 MG, QD
     Route: 048
     Dates: start: 20191114
  5. XARELTO [Concomitant]
     Active Substance: RIVAROXABAN
     Dosage: 20 MG, QD
  6. COREG [Concomitant]
     Active Substance: CARVEDILOL
     Dosage: 6.25 MG, BID
  7. SYNTHROID [Concomitant]
     Active Substance: LEVOTHYROXINE SODIUM
     Dosage: 50 MCG, QD
  8. NOVO TEARS [Concomitant]
     Dosage: 1 GTT, QID
     Dates: start: 201908
  9. EFFEXOR [Concomitant]
     Active Substance: VENLAFAXINE HYDROCHLORIDE
     Dosage: 150 MG, QD
  10. ATARAX [Concomitant]
     Active Substance: HYDROXYZINE HYDROCHLORIDE
     Dosage: 50 MG, QID, PRN
  11. RESTASIS [Concomitant]
     Active Substance: CYCLOSPORINE
     Dosage: 20 MG, TID
  12. PANTOPRAZOLE [Concomitant]
     Active Substance: PANTOPRAZOLE
     Dosage: 40 MG, QD
     Dates: start: 201912
  13. DIGOXIN. [Concomitant]
     Active Substance: DIGOXIN
     Dosage: 0.125 MG, QD
  14. SILDENAFIL. [Concomitant]
     Active Substance: SILDENAFIL
     Dosage: 20 MG, TID
     Dates: start: 201910
  15. ENTRESTO [Concomitant]
     Active Substance: SACUBITRIL\VALSARTAN
     Dosage: 24/26 UNK, BID
     Dates: start: 201911
  16. LEVOTHYROXINE. [Concomitant]
     Active Substance: LEVOTHYROXINE
     Dosage: 50 MCG, QD

REACTIONS (17)
  - Urinary tract infection [Not Recovered/Not Resolved]
  - Decreased appetite [Not Recovered/Not Resolved]
  - Visual impairment [Not Recovered/Not Resolved]
  - Cough [Not Recovered/Not Resolved]
  - Ejection fraction decreased [Not Recovered/Not Resolved]
  - Anal incontinence [Not Recovered/Not Resolved]
  - Depressed mood [Not Recovered/Not Resolved]
  - Headache [Not Recovered/Not Resolved]
  - Corneal disorder [Not Recovered/Not Resolved]
  - Back pain [Not Recovered/Not Resolved]
  - Asthenia [Not Recovered/Not Resolved]
  - Condition aggravated [Not Recovered/Not Resolved]
  - Anxiety [Not Recovered/Not Resolved]
  - Somnolence [Not Recovered/Not Resolved]
  - Dyspnoea [Unknown]
  - Loss of personal independence in daily activities [Not Recovered/Not Resolved]
  - Gastrooesophageal reflux disease [Not Recovered/Not Resolved]

NARRATIVE: CASE EVENT DATE: 201911
